FAERS Safety Report 12739037 (Version 2)
Quarter: 2016Q4

REPORT INFORMATION
  Report Type: Spontaneous
  Country: JP (occurrence: JP)
  Receive Date: 20160913
  Receipt Date: 20161020
  Transmission Date: 20170207
  Serious: Yes (Hospitalization)
  Sender: FDA-Public Use
  Company Number: JP-PFIZER INC-2016375338

PATIENT
  Age: 44 Year
  Sex: Female

DRUGS (9)
  1. VOLTAREN [Concomitant]
     Active Substance: DICLOFENAC SODIUM
     Dosage: 25 MG, AS NEEDED
     Route: 048
     Dates: start: 20160603
  2. LYRICA [Suspect]
     Active Substance: PREGABALIN
     Indication: PAIN
     Dosage: 75 MG, 2X/DAY
     Route: 048
     Dates: start: 20160603
  3. LOXOPROFEN [Concomitant]
     Active Substance: LOXOPROFEN
     Indication: BACK PAIN
     Dosage: 60 MG, 3X/DAY
     Route: 048
     Dates: start: 20160509
  4. ONETRAM [Suspect]
     Active Substance: TRAMADOL HYDROCHLORIDE
     Indication: PAIN
     Dosage: 100 MG, 1X/DAY
     Route: 048
     Dates: start: 20160607, end: 20160724
  5. TRAMCET [Concomitant]
     Active Substance: ACETAMINOPHEN\TRAMADOL
     Indication: PAIN
     Dosage: 1 DF, 2X/DAY
     Route: 048
     Dates: start: 20160523
  6. REBAMIPIDE [Concomitant]
     Active Substance: REBAMIPIDE
     Dosage: 100 MG, 3X/DAY
     Route: 048
  7. SUMILU [Concomitant]
     Active Substance: FELBINAC
     Dosage: UNK
     Route: 061
     Dates: start: 20160509
  8. PRAMIEL [Concomitant]
     Dosage: 1 DF, 2X/DAY
     Route: 048
     Dates: start: 20160523
  9. LOXOPROFEN [Concomitant]
     Active Substance: LOXOPROFEN
     Indication: MUSCULOSKELETAL PAIN

REACTIONS (7)
  - Nausea [Unknown]
  - Anxiety [Unknown]
  - Restless legs syndrome [Recovered/Resolved]
  - Feeling abnormal [Unknown]
  - Withdrawal syndrome [Unknown]
  - Hyperventilation [Unknown]
  - Panic disorder [Unknown]

NARRATIVE: CASE EVENT DATE: 20160606
